FAERS Safety Report 4738258-1 (Version None)
Quarter: 2005Q3

REPORT INFORMATION
  Report Type: 
  Country: None (occurrence: None)
  Receive Date: 20050805
  Receipt Date: 20050726
  Transmission Date: 20060218
  Serious: Yes (Other)
  Sender: FDA-Public Use
  Company Number: 2005106293

PATIENT
  Age: 73 Year
  Sex: Male

DRUGS (2)
  1. ATARAX [Suspect]
     Indication: ILL-DEFINED DISORDER
     Dosage: ORAL
     Route: 048
     Dates: start: 20041217, end: 20050316
  2. INEXIUM (ESOMEPRAZOLE MAGNESIUM) [Suspect]
     Indication: ILL-DEFINED DISORDER
     Dosage: ORAL
     Route: 048
     Dates: start: 20041224, end: 20050316

REACTIONS (5)
  - ASCITES [None]
  - CHOLECYSTECTOMY [None]
  - CHOLESTASIS [None]
  - HEPATIC FAILURE [None]
  - HEPATIC NECROSIS [None]
